FAERS Safety Report 15125766 (Version 2)
Quarter: 2018Q4

REPORT INFORMATION
  Report Type: Spontaneous
  Country: US (occurrence: US)
  Receive Date: 20180710
  Receipt Date: 20181221
  Transmission Date: 20190204
  Serious: Yes (Other)
  Sender: FDA-Public Use
  Company Number: US-PFIZER INC-2018274074

PATIENT
  Age: 50 Year
  Sex: Female

DRUGS (1)
  1. SOMAVERT [Suspect]
     Active Substance: PEGVISOMANT
     Dosage: 20 MG, DAILY

REACTIONS (7)
  - Electrocardiogram abnormal [Unknown]
  - Blood growth hormone increased [Unknown]
  - Bundle branch block right [Unknown]
  - Coronary artery stenosis [Unknown]
  - Sinus bradycardia [Unknown]
  - Bundle branch block left [Unknown]
  - Electrocardiogram repolarisation abnormality [Unknown]
